FAERS Safety Report 19971033 (Version 5)
Quarter: 2021Q4

REPORT INFORMATION
  Report Type: Report from Study
  Country: GB (occurrence: None)
  Receive Date: 20211019
  Receipt Date: 20211210
  Transmission Date: 20220303
  Serious: Yes (Hospitalization)
  Sender: FDA-Public Use
  Company Number: GB-ROCHE-2933884

PATIENT
  Age: 55 Year
  Sex: Male
  Weight: 92.7 kg

DRUGS (19)
  1. INVESTIGATIONAL PRODUCT [Suspect]
     Active Substance: INVESTIGATIONAL PRODUCT
     Indication: Metastatic neoplasm
     Dosage: TOTAL VOLUME PRIOR AE AND SAE 50 ML?ON 04/OCT/2021 AT 12:46 TO 1:21 PM, RECEIVED MOST RECENT DOSE (2
     Route: 041
     Dates: start: 20210524
  2. ATEZOLIZUMAB [Suspect]
     Active Substance: ATEZOLIZUMAB
     Indication: Metastatic neoplasm
     Dosage: TOTAL VOLUME PRIOR AE AND SAE 250 ML?ON 20/SEP/2021 FROM 5:26 TO 5:58 PM, RECEIVED MOST RECENT DOSE
     Route: 041
     Dates: start: 20210524
  3. TOCILIZUMAB [Suspect]
     Active Substance: TOCILIZUMAB
     Indication: Metastatic neoplasm
     Dosage: TOTAL VOLUME PRIOR AE AND SAE 100 ML?ON 26/JUL/2021 FROM 3:02 TO 6:15 PM, RECEIVED MOST RECENT DOSE
     Route: 042
     Dates: start: 20210726
  4. ACETAMINOPHEN [Concomitant]
     Active Substance: ACETAMINOPHEN
     Indication: Pyrexia
     Dates: start: 20210603
  5. DERMOL [Concomitant]
     Active Substance: BENZALKONIUM CHLORIDE\CHLORHEXIDINE HYDROCHLORIDE\ISOPROPYL MYRISTATE\PARAFFIN
     Indication: Rash
     Dosage: MEDICATION DOSE: 1 FINGERTIP UNIT
     Dates: start: 20210611
  6. PREDNISOLONE [Concomitant]
     Active Substance: PREDNISOLONE
     Indication: Rash
     Dates: start: 20210621
  7. PREDNISOLONE [Concomitant]
     Active Substance: PREDNISOLONE
     Indication: Face oedema
     Dates: start: 20210805, end: 20210903
  8. LORATADINE [Concomitant]
     Active Substance: LORATADINE
     Indication: Rash
     Dates: start: 20210831
  9. CETRABEN CREAM [Concomitant]
     Indication: Rash
     Dates: start: 20210831
  10. ALOGLIPTIN [Concomitant]
     Active Substance: ALOGLIPTIN
     Indication: Type 2 diabetes mellitus
     Dates: start: 2017
  11. ATORVASTATIN [Concomitant]
     Active Substance: ATORVASTATIN
     Indication: Blood cholesterol increased
     Dates: start: 2017
  12. METFORMIN [Concomitant]
     Active Substance: METFORMIN HYDROCHLORIDE
     Indication: Type 2 diabetes mellitus
     Dates: start: 2015
  13. SULFAMETHOXAZOLE\TRIMETHOPRIM [Concomitant]
     Active Substance: SULFAMETHOXAZOLE\TRIMETHOPRIM
     Dates: start: 20210804, end: 20210901
  14. SULFAMETHOXAZOLE\TRIMETHOPRIM [Concomitant]
     Active Substance: SULFAMETHOXAZOLE\TRIMETHOPRIM
     Dates: start: 20211022, end: 20211203
  15. ACYCLOVIR [Concomitant]
     Active Substance: ACYCLOVIR
     Dates: start: 20210804, end: 20210901
  16. ACYCLOVIR [Concomitant]
     Active Substance: ACYCLOVIR
     Dates: start: 20211022, end: 20211203
  17. FLUCONAZOLE [Concomitant]
     Active Substance: FLUCONAZOLE
     Dates: start: 20210804, end: 20210901
  18. FLUCONAZOLE [Concomitant]
     Active Substance: FLUCONAZOLE
     Dates: start: 20211022, end: 20211203
  19. OMEPRAZOLE [Concomitant]
     Active Substance: OMEPRAZOLE
     Indication: Prophylaxis
     Dates: start: 20211022, end: 20211203

REACTIONS (1)
  - Nervous system disorder [Recovered/Resolved]

NARRATIVE: CASE EVENT DATE: 20210927
